FAERS Safety Report 16812225 (Version 1)
Quarter: 2019Q3

REPORT INFORMATION
  Report Type: Spontaneous
  Country: FR (occurrence: FR)
  Receive Date: 20190916
  Receipt Date: 20190916
  Transmission Date: 20191005
  Serious: Yes (Life-Threatening)
  Sender: FDA-Public Use
  Company Number: FR-MYLANLABS-2019M1086608

PATIENT
  Age: 67 Year
  Sex: Female
  Weight: 77 kg

DRUGS (3)
  1. ALOXI [Suspect]
     Active Substance: PALONOSETRON HYDROCHLORIDE
     Indication: VOMITING
     Dosage: 1 DOSAGE FORM, TOTAL
     Route: 042
     Dates: start: 20190401, end: 20190401
  2. IFOSFAMIDE. [Suspect]
     Active Substance: IFOSFAMIDE
     Indication: SARCOMA
     Dosage: 5360 MILLIGRAM
     Route: 042
     Dates: start: 20190401, end: 20190403
  3. EPIRUBICIN [Suspect]
     Active Substance: EPIRUBICIN
     Indication: SARCOMA
     Dosage: 108 MILLIGRAM
     Route: 042
     Dates: start: 20190401, end: 20190402

REACTIONS (1)
  - Inappropriate antidiuretic hormone secretion [Recovering/Resolving]

NARRATIVE: CASE EVENT DATE: 201904
